FAERS Safety Report 21495973 (Version 2)
Quarter: 2022Q4

REPORT INFORMATION
  Report Type: Report from Study
  Country: US (occurrence: US)
  Receive Date: 20221022
  Receipt Date: 20221103
  Transmission Date: 20230113
  Serious: No
  Sender: FDA-Public Use
  Company Number: US-ABBVIE-4148786

PATIENT
  Age: 85 Year
  Sex: Female

DRUGS (1)
  1. IMBRUVICA [Suspect]
     Active Substance: IBRUTINIB
     Indication: Chronic lymphocytic leukaemia
     Route: 048

REACTIONS (5)
  - Arthropod bite [Unknown]
  - Dermatitis [Unknown]
  - Rash [Recovering/Resolving]
  - Erythema [Unknown]
  - Back pain [Unknown]

NARRATIVE: CASE EVENT DATE: 20220701
